FAERS Safety Report 15866766 (Version 1)
Quarter: 2019Q1

REPORT INFORMATION
  Report Type: Spontaneous
  Country: US (occurrence: US)
  Receive Date: 20190125
  Receipt Date: 20190125
  Transmission Date: 20190417
  Serious: No
  Sender: FDA-Public Use
  Company Number: US-BAYER-2019-017824

PATIENT
  Age: 55 Year
  Sex: Female
  Weight: 61 kg

DRUGS (2)
  1. ALEVE [Suspect]
     Active Substance: NAPROXEN SODIUM
     Indication: PAIN
     Dosage: 2-4 DF, QD
     Route: 048
     Dates: start: 20190106, end: 20190120
  2. ALEVE [Suspect]
     Active Substance: NAPROXEN SODIUM
     Indication: PAIN
     Dosage: 2 DF, QD
     Route: 048
     Dates: start: 20190105, end: 20190105

REACTIONS (4)
  - Fall [None]
  - Product prescribing error [Unknown]
  - Drug effect incomplete [Unknown]
  - Extra dose administered [None]

NARRATIVE: CASE EVENT DATE: 20190105
